FAERS Safety Report 20669701 (Version 1)
Quarter: 2022Q2

REPORT INFORMATION
  Report Type: Report from Study
  Country: CN (occurrence: CN)
  Receive Date: 20220404
  Receipt Date: 20220404
  Transmission Date: 20220720
  Serious: Yes (Hospitalization)
  Sender: FDA-Public Use
  Company Number: CN-PFIZER INC-202200458546

PATIENT
  Age: 59 Year
  Sex: Female
  Weight: 58 kg

DRUGS (4)
  1. METHOTREXATE SODIUM [Suspect]
     Active Substance: METHOTREXATE SODIUM
     Indication: Rheumatoid arthritis
     Dosage: 10 MG, WEEKLY, 1 IN 1 WK
     Route: 048
     Dates: start: 20180212
  2. TOCILIZUMAB [Suspect]
     Active Substance: TOCILIZUMAB
     Indication: Rheumatoid arthritis
     Dosage: 162 MG, 1 IN 2 WK
     Route: 058
     Dates: start: 20180209
  3. FOLIC ACID [Concomitant]
     Active Substance: FOLIC ACID
     Dosage: UNK
     Dates: start: 2006
  4. METHOTREXATE [Concomitant]
     Active Substance: METHOTREXATE
     Indication: Rheumatoid arthritis
     Dosage: UNK
     Dates: start: 20190115

REACTIONS (1)
  - Breast neoplasm [Recovered/Resolved]

NARRATIVE: CASE EVENT DATE: 20190517
